FAERS Safety Report 25080081 (Version 1)
Quarter: 2025Q1

REPORT INFORMATION
  Report Type: Spontaneous
  Country: US (occurrence: US)
  Receive Date: 20250314
  Receipt Date: 20250314
  Transmission Date: 20250408
  Serious: Yes (Hospitalization)
  Sender: RIGEL PHARMACEUTICALS
  Company Number: US-RIGEL Pharmaceuticals INC- 20250300026

PATIENT
  Age: 55 Year
  Sex: Male

DRUGS (2)
  1. REZLIDHIA [Suspect]
     Active Substance: OLUTASIDENIB
     Indication: Thrombocytopenia
     Dosage: 150 MG, BID
     Route: 048
  2. REZLIDHIA [Suspect]
     Active Substance: OLUTASIDENIB
     Indication: Monoclonal gammopathy

REACTIONS (2)
  - Hospitalisation [Unknown]
  - Off label use [Unknown]

NARRATIVE: CASE EVENT DATE: 20241218
